FAERS Safety Report 13540422 (Version 2)
Quarter: 2017Q2

REPORT INFORMATION
  Report Type: Spontaneous
  Country: DE (occurrence: DE)
  Receive Date: 20170512
  Receipt Date: 20170526
  Transmission Date: 20170830
  Serious: Yes (Hospitalization, Other)
  Sender: FDA-Public Use
  Company Number: DE-ASTRAZENECA-2017SE50597

PATIENT
  Age: 29633 Day
  Sex: Female
  Weight: 75 kg

DRUGS (2)
  1. LYNPARZA [Suspect]
     Active Substance: OLAPARIB
     Indication: OVARIAN CANCER
     Route: 048
     Dates: start: 20161107, end: 20170422
  2. LYNPARZA [Suspect]
     Active Substance: OLAPARIB
     Indication: OVARIAN CANCER
     Route: 048
     Dates: start: 20160701, end: 20170401

REACTIONS (10)
  - Faeces discoloured [Unknown]
  - Dyspnoea exertional [Unknown]
  - Metastases to peritoneum [Unknown]
  - Hepatic infarction [Not Recovered/Not Resolved]
  - Splenic infarction [Not Recovered/Not Resolved]
  - Spinal pain [Unknown]
  - Visual impairment [Unknown]
  - Hyperchromic anaemia [Recovered/Resolved]
  - Cardiac failure [Not Recovered/Not Resolved]
  - Diverticulum intestinal [Unknown]

NARRATIVE: CASE EVENT DATE: 20170401
